FAERS Safety Report 5780387-8 (Version None)
Quarter: 2008Q2

REPORT INFORMATION
  Report Type: 
  Country: None (occurrence: None)
  Receive Date: 20080620
  Receipt Date: 20080617
  Transmission Date: 20081010
  Serious: Yes (Hospitalization)
  Sender: FDA-Public Use
  Company Number: FR-BRISTOL-MYERS SQUIBB COMPANY-13823364

PATIENT
  Age: 39 Year
  Sex: Male
  Weight: 76 kg

DRUGS (10)
  1. SUSTIVA [Suspect]
     Indication: HIV INFECTION
     Route: 048
     Dates: start: 20070601
  2. AMIKLIN INJ [Suspect]
     Indication: TUBERCULOSIS
     Dates: start: 20070507
  3. TRUVADA [Suspect]
     Indication: HIV INFECTION
     Dates: start: 20070601
  4. PIRILENE [Suspect]
     Indication: TUBERCULOSIS
     Dates: start: 20070514
  5. MYAMBUTOL [Suspect]
     Indication: TUBERCULOSIS
     Dates: start: 20070507
  6. RIMIFON [Suspect]
     Indication: TUBERCULOSIS
     Dates: start: 20070514
  7. IZILOX [Suspect]
     Indication: TUBERCULOSIS
     Dates: start: 20070507
  8. BACTRIM [Concomitant]
     Indication: PROPHYLAXIS
     Dates: start: 20070222
  9. DEPAKENE [Concomitant]
     Indication: EPILEPSY
     Dates: start: 20070514
  10. AZADOSE [Concomitant]
     Indication: TUBERCULOSIS
     Dates: start: 20070514

REACTIONS (7)
  - BRAIN STEM SYNDROME [None]
  - IMMUNE RECONSTITUTION SYNDROME [None]
  - INFLAMMATION [None]
  - INTRACRANIAL PRESSURE INCREASED [None]
  - NAUSEA [None]
  - NERVOUS SYSTEM DISORDER [None]
  - VOMITING [None]
